FAERS Safety Report 17139185 (Version 2)
Quarter: 2019Q4

REPORT INFORMATION
  Report Type: Spontaneous
  Country: SE (occurrence: SE)
  Receive Date: 20191211
  Receipt Date: 20191226
  Transmission Date: 20200122
  Serious: Yes (Hospitalization, Other)
  Sender: FDA-Public Use
  Company Number: SE-AUROBINDO-AUR-APL-2019-104544

PATIENT
  Age: 40 Year
  Sex: Male

DRUGS (5)
  1. ARITAVI [Suspect]
     Active Substance: DULOXETINE HYDROCHLORIDE
     Indication: PRODUCT USED FOR UNKNOWN INDICATION
     Dosage: 60 MILLIGRAM
     Route: 048
     Dates: start: 20181003
  2. STILNOCT [Suspect]
     Active Substance: ZOLPIDEM TARTRATE
     Indication: PRODUCT USED FOR UNKNOWN INDICATION
     Dosage: 5 MILLIGRAM, TWO TIMES A DAY (10 MG)
     Route: 048
     Dates: start: 20181003
  3. OLANZAPINE. [Suspect]
     Active Substance: OLANZAPINE
     Indication: PRODUCT USED FOR UNKNOWN INDICATION
     Dosage: 7.5 MILLIGRAM, TWO TIMES A DAY (14 MG)
     Route: 048
     Dates: start: 20181003, end: 20181003
  4. LERGIGAN (PROMETHAZINE HYDROCHLORIDE) [Suspect]
     Active Substance: PROMETHAZINE HYDROCHLORIDE
     Indication: PRODUCT USED FOR UNKNOWN INDICATION
     Dosage: 50 MILLIGRAM, 3 TIMES A DAY (150 MG)
     Route: 048
     Dates: start: 20181003
  5. PROPAVAN [Suspect]
     Active Substance: PROPIOMAZINE
     Indication: PRODUCT USED FOR UNKNOWN INDICATION
     Dosage: 25 MILLIGRAM (10 PCS) (250 MG)
     Route: 048
     Dates: start: 20181003

REACTIONS (3)
  - Intentional self-injury [Unknown]
  - Lethargy [Unknown]
  - Intentional overdose [Unknown]

NARRATIVE: CASE EVENT DATE: 20181003
